FAERS Safety Report 7264055-1 (Version None)
Quarter: 2011Q1

REPORT INFORMATION
  Report Type: 
  Country: None (occurrence: None)
  Receive Date: 20110130
  Receipt Date: 20101230
  Transmission Date: 20110831
  Serious: No
  Sender: FDA-Public Use
  Company Number: US-ABBOTT-10P-163-0694484-00

PATIENT
  Sex: Female

DRUGS (3)
  1. UNKNOWN MEDICATION [Concomitant]
     Indication: BLOOD TRIGLYCERIDES
  2. HUMIRA [Suspect]
     Indication: PSORIASIS
     Route: 058
     Dates: start: 20080101
  3. UNKNOWN MEDICATION [Concomitant]
     Indication: BLOOD CHOLESTEROL

REACTIONS (2)
  - DRUG DOSE OMISSION [None]
  - DIVERTICULITIS [None]
